FAERS Safety Report 5191137-0 (Version None)
Quarter: 2006Q4

REPORT INFORMATION
  Report Type: 
  Country: None (occurrence: None)
  Receive Date: 20061226
  Receipt Date: 20061221
  Transmission Date: 20070319
  Serious: Yes (Death)
  Sender: FDA-Public Use
  Company Number: PHNU2006DE04251

PATIENT
  Sex: Female

DRUGS (3)
  1. TEGRETOL [Suspect]
     Indication: EPILEPSY
     Dosage: 600 MG, BID
     Route: 048
  2. PRIMIDONE [Concomitant]
     Indication: EPILEPSY
  3. TEGRETOL [Suspect]
     Indication: EPILEPSY
     Dosage: 100 MG, BID
     Route: 048

REACTIONS (5)
  - AGITATION [None]
  - CONFUSIONAL STATE [None]
  - CONVULSION [None]
  - PULMONARY EMBOLISM [None]
  - THROMBOSIS [None]
